FAERS Safety Report 7410587-2 (Version None)
Quarter: 2011Q2

REPORT INFORMATION
  Report Type: 
  Country: None (occurrence: None)
  Receive Date: 20110413
  Receipt Date: 20100120
  Transmission Date: 20111010
  Serious: No
  Sender: FDA-Public Use
  Company Number: 2010BI003341

PATIENT
  Sex: Female

DRUGS (1)
  1. TYSABRI [Suspect]
     Indication: MULTIPLE SCLEROSIS
     Route: 042
     Dates: start: 20070103, end: 20080722

REACTIONS (2)
  - OPTIC NERVE DISORDER [None]
  - GLAUCOMA [None]
